FAERS Safety Report 15089307 (Version 1)
Quarter: 2018Q2

REPORT INFORMATION
  Report Type: Spontaneous
  Country: US (occurrence: US)
  Receive Date: 20180629
  Receipt Date: 20180629
  Transmission Date: 20180711
  Serious: No
  Sender: FDA-Public Use
  Company Number: US-EGALET US INC-US-2017EGA000809

PATIENT

DRUGS (1)
  1. SPRIX [Suspect]
     Active Substance: KETOROLAC TROMETHAMINE
     Indication: PAIN
     Dosage: ONE SPRAY IN EACH NOSTRIL EVERY 6 TO 8 HOURS
     Route: 045
     Dates: start: 20170817

REACTIONS (6)
  - Headache [Not Recovered/Not Resolved]
  - Pharyngeal ulceration [Unknown]
  - Oropharyngeal blistering [Unknown]
  - Hot flush [Not Recovered/Not Resolved]
  - Throat irritation [Unknown]
  - Somnolence [Not Recovered/Not Resolved]

NARRATIVE: CASE EVENT DATE: 201708
